FAERS Safety Report 9955950 (Version 1)
Quarter: 2014Q1

REPORT INFORMATION
  Report Type: Report from Study
  Country: US (occurrence: US)
  Receive Date: 20140304
  Receipt Date: 20140304
  Transmission Date: 20141002
  Serious: No
  Sender: FDA-Public Use
  Company Number: US-ABBVIE-13P-163-1084215-00

PATIENT
  Age: 57 Year
  Sex: Female

DRUGS (5)
  1. HUMIRA [Suspect]
     Indication: RHEUMATOID ARTHRITIS
     Dates: start: 2012
  2. UNKNOWN MEDICATION [Concomitant]
     Indication: RHEUMATOID ARTHRITIS
  3. OXYBUTININ [Concomitant]
     Indication: BLADDER SPASM
  4. SERTRALINE [Concomitant]
     Indication: DEPRESSION
  5. MELOXICAM [Concomitant]
     Indication: RHEUMATOID ARTHRITIS

REACTIONS (3)
  - Pharyngitis streptococcal [Recovered/Resolved]
  - Pharyngeal haemorrhage [Recovered/Resolved]
  - Pharyngitis streptococcal [Recovered/Resolved]
